FAERS Safety Report 18765958 (Version 1)
Quarter: 2021Q1

REPORT INFORMATION
  Report Type: Other
  Country: KR (occurrence: KR)
  Receive Date: 20210121
  Receipt Date: 20210121
  Transmission Date: 20210419
  Serious: Yes (Death)
  Sender: FDA-Public Use
  Company Number: KR-ROCHE-2728347

PATIENT
  Age: 62 Year
  Sex: Male
  Weight: 80.5 kg

DRUGS (15)
  1. DICLOMED SOLUTION [Concomitant]
     Indication: STOMATITIS
     Dates: start: 20201022, end: 20201201
  2. SAMA TANTUM [Concomitant]
     Indication: STOMATITIS
     Dates: start: 20201023, end: 20201115
  3. RABEONE [Concomitant]
     Route: 048
     Dates: start: 20201021, end: 20201223
  4. CYMBALTA [Concomitant]
     Active Substance: DULOXETINE HYDROCHLORIDE
     Indication: DIABETES MELLITUS
  5. TARGIN [Concomitant]
     Active Substance: NALOXONE HYDROCHLORIDE\OXYCODONE HYDROCHLORIDE
     Indication: LUNG NEOPLASM MALIGNANT
     Route: 048
     Dates: start: 20201216, end: 20201227
  6. KYTRIL [Concomitant]
     Active Substance: GRANISETRON HYDROCHLORIDE
     Route: 048
     Dates: start: 20201021, end: 20201201
  7. CRESTOR [Concomitant]
     Active Substance: ROSUVASTATIN CALCIUM
     Indication: DYSLIPIDAEMIA
     Route: 048
     Dates: end: 20201228
  8. LYRICA [Concomitant]
     Active Substance: PREGABALIN
     Indication: LUNG NEOPLASM MALIGNANT
     Route: 048
     Dates: start: 20201021, end: 20201227
  9. CYMBALTA [Concomitant]
     Active Substance: DULOXETINE HYDROCHLORIDE
     Indication: NEURALGIA
     Route: 048
     Dates: start: 20201021, end: 20201130
  10. ATEZOLIZUMAB. [Suspect]
     Active Substance: ATEZOLIZUMAB
     Indication: NON-SMALL CELL LUNG CANCER METASTATIC
     Route: 042
     Dates: start: 20201102
  11. IMPACTAMIN [Concomitant]
     Indication: STOMATITIS
     Route: 048
     Dates: start: 20201106, end: 20201201
  12. TARGIN [Concomitant]
     Active Substance: NALOXONE HYDROCHLORIDE\OXYCODONE HYDROCHLORIDE
     Indication: LUNG NEOPLASM MALIGNANT
     Route: 048
     Dates: start: 20201222, end: 20201227
  13. AIRTAL [Concomitant]
     Active Substance: ACECLOFENAC
     Indication: LUNG NEOPLASM MALIGNANT
     Route: 048
     Dates: start: 20201021, end: 20201112
  14. ULTRACET ER SEMI [Concomitant]
     Indication: LUNG NEOPLASM MALIGNANT
     Route: 048
     Dates: start: 20201021, end: 20201215
  15. LIPIDIL SUPRA [Concomitant]
     Active Substance: FENOFIBRATE
     Indication: DYSLIPIDAEMIA
     Route: 048
     Dates: end: 20201228

REACTIONS (6)
  - Pneumonitis [Fatal]
  - Dyspepsia [Recovered/Resolved]
  - Constipation [Recovered/Resolved]
  - Palmar-plantar erythrodysaesthesia syndrome [Recovering/Resolving]
  - Dyspepsia [Recovered/Resolved]
  - Decreased appetite [Recovered/Resolved]

NARRATIVE: CASE EVENT DATE: 20201102
